FAERS Safety Report 7943110-4 (Version None)
Quarter: 2011Q4

REPORT INFORMATION
  Report Type: 
  Country: None (occurrence: None)
  Receive Date: 20111128
  Receipt Date: 20111115
  Transmission Date: 20120403
  Serious: Yes (Hospitalization)
  Sender: FDA-Public Use
  Company Number: PHEH2011US009594

PATIENT
  Sex: Female

DRUGS (1)
  1. NEORAL [Suspect]
     Dosage: 75 MG, BID
     Dates: start: 20110622

REACTIONS (3)
  - IMMUNOSUPPRESSION [None]
  - SWELLING FACE [None]
  - EYE SWELLING [None]
